FAERS Safety Report 10171356 (Version 1)
Quarter: 2014Q2

REPORT INFORMATION
  Report Type: Spontaneous
  Country: ES (occurrence: None)
  Receive Date: 20140512
  Receipt Date: 20140512
  Transmission Date: 20141212
  Serious: Yes (Death, Other)
  Sender: FDA-Public Use
  Company Number: KAD201405-000470

PATIENT
  Age: 33 Year
  Sex: Female

DRUGS (3)
  1. RIBAVIRIN [Suspect]
     Indication: PARAINFLUENZAE VIRUS INFECTION
  2. GANCICLOVIR [Suspect]
  3. MYCOPHENOLATE(MYCOPHENOLATE) [Suspect]
     Indication: IMMUNOSUPPRESSION

REACTIONS (5)
  - Obliterative bronchiolitis [None]
  - Vasculitis [None]
  - Respiratory failure [None]
  - Off label use [None]
  - Transplant rejection [None]
